FAERS Safety Report 6025538-5 (Version None)
Quarter: 2008Q4

REPORT INFORMATION
  Report Type: 
  Country: None (occurrence: None)
  Receive Date: 20081224
  Receipt Date: 20081216
  Transmission Date: 20090506
  Serious: Yes (Hospitalization)
  Sender: FDA-Public Use
  Company Number: 2008002124

PATIENT
  Age: 68 Year
  Sex: Male
  Weight: 58 kg

DRUGS (10)
  1. ERLOTINIB          (ERLOTINIB) [Suspect]
     Indication: LUNG ADENOCARCINOMA
     Dosage: 150 MG, QD, ORAL
     Route: 048
     Dates: start: 20080724, end: 20080729
  2. CODEINE PHOSPHATE (CODEINE PHOSPHATE) [Concomitant]
  3. MAGNESIUM OXIDE (MAGNESIUM OXIDE) [Concomitant]
  4. CARVEDILOL [Concomitant]
  5. LASIX [Concomitant]
  6. DIGOXIN [Concomitant]
  7. DILTIAZEM HYDROCHLORIDE [Concomitant]
  8. AMARYL [Concomitant]
  9. WARFARIN SODIUM [Concomitant]
  10. GOODMIN [Concomitant]

REACTIONS (4)
  - C-REACTIVE PROTEIN INCREASED [None]
  - PYREXIA [None]
  - RASH PAPULAR [None]
  - RASH PUSTULAR [None]
